FAERS Safety Report 7153782-2 (Version None)
Quarter: 2010Q4

REPORT INFORMATION
  Report Type: 
  Country: None (occurrence: None)
  Receive Date: 20101213
  Receipt Date: 20100301
  Transmission Date: 20110411
  Serious: No
  Sender: FDA-Public Use
  Company Number: US-ABBOTT-10P-163-0629647-00

PATIENT
  Sex: Male
  Weight: 123.94 kg

DRUGS (5)
  1. MERIDIA [Suspect]
     Indication: WEIGHT CONTROL
     Dates: start: 20091218
  2. LISINOPRIL [Concomitant]
     Indication: BLOOD PRESSURE
  3. METOPROLOL [Concomitant]
     Indication: BLOOD PRESSURE
     Dates: start: 20091101
  4. PERCOCET [Concomitant]
     Indication: BACK PAIN
     Dosage: 10/325
  5. RANITIDINE [Concomitant]
     Indication: FLUSHING
     Dates: start: 20080201

REACTIONS (1)
  - NAIL DISCOLOURATION [None]
